FAERS Safety Report 19498559 (Version 1)
Quarter: 2021Q3

REPORT INFORMATION
  Report Type: Spontaneous
  Country: CD (occurrence: CD)
  Receive Date: 20210706
  Receipt Date: 20210706
  Transmission Date: 20211014
  Serious: Yes (Death)
  Sender: FDA-Public Use
  Company Number: CD-PFIZER INC-2021487306

PATIENT
  Age: 55 Year
  Sex: Male

DRUGS (14)
  1. ALDACTAZINE [Concomitant]
     Active Substance: ALTHIAZIDE\SPIRONOLACTONE
     Indication: HYPERTENSION
     Dosage: 1 DF, 1X/DAY
  2. AZITHROMYCIN ANHYDROUS. [Suspect]
     Active Substance: AZITHROMYCIN ANHYDROUS
     Indication: INTERSTITIAL LUNG DISEASE
     Dosage: 500 MG, DAILY
     Route: 048
     Dates: start: 20190920, end: 20190924
  3. PARACETAMOL [Suspect]
     Active Substance: ACETAMINOPHEN
     Indication: INTERSTITIAL LUNG DISEASE
     Dosage: 1000 MG,UP TO 3 TIMES A DAY IF NECESSARY
     Dates: start: 20190920
  4. OXYGEN. [Concomitant]
     Active Substance: OXYGEN
     Dosage: INCREASED TO 10 L/MIN
     Dates: start: 20191016
  5. NICARDIPINE [Concomitant]
     Active Substance: NICARDIPINE
     Indication: HYPERTENSION
     Dosage: 20 MG, 2X/DAY
  6. METHYLPREDNISOLONE SODIUM SUCCINATE. [Suspect]
     Active Substance: METHYLPREDNISOLONE SODIUM SUCCINATE
     Indication: ZOONOSIS
     Dosage: 125 MG, 2X/DAY
     Route: 042
     Dates: start: 20191023
  7. DUOVENT [Suspect]
     Active Substance: FENOTEROL HYDROBROMIDE
     Indication: ZOONOSIS
     Dosage: IN NEBULIZATION
     Dates: start: 20191023
  8. OXYGEN. [Concomitant]
     Active Substance: OXYGEN
     Indication: ACUTE RESPIRATORY DISTRESS SYNDROME
     Dosage: BY MASK (5L/MIN)
     Dates: start: 20191010, end: 20191016
  9. AMOXICILLIN + CLAVULANIC ACID [Suspect]
     Active Substance: AMOXICILLIN\CLAVULANIC ACID
     Indication: ACUTE RESPIRATORY DISTRESS SYNDROME
     Dosage: 1/0.25G THRICE DAILY
     Route: 042
     Dates: start: 20191010, end: 20191012
  10. LEVOFLOXACIN. [Suspect]
     Active Substance: LEVOFLOXACIN
     Indication: ACUTE RESPIRATORY DISTRESS SYNDROME
     Dosage: 500 MG, 2X/DAY
     Dates: start: 20191012
  11. METHYLPREDNISOLONE SODIUM SUCCINATE. [Suspect]
     Active Substance: METHYLPREDNISOLONE SODIUM SUCCINATE
     Indication: ACUTE RESPIRATORY DISTRESS SYNDROME
     Dosage: 125 MG, 2X/DAY
     Dates: start: 20191016, end: 20191020
  12. CEFTRIAXONE. [Suspect]
     Active Substance: CEFTRIAXONE
     Indication: ACUTE RESPIRATORY DISTRESS SYNDROME
     Dosage: 1 G, 2X/DAY
     Dates: start: 20191012
  13. DEXAMETHASONE. [Suspect]
     Active Substance: DEXAMETHASONE
     Indication: ACUTE RESPIRATORY DISTRESS SYNDROME
     Dosage: 16 MG, 3X/DAY
     Route: 042
     Dates: start: 20191012, end: 20191016
  14. BISOPROLOL [Concomitant]
     Active Substance: BISOPROLOL
     Indication: HYPERTENSION
     Dosage: 5 MG, 2X/DAY

REACTIONS (1)
  - Drug ineffective [Fatal]

NARRATIVE: CASE EVENT DATE: 201910
